FAERS Safety Report 14152358 (Version 1)
Quarter: 2017Q4

REPORT INFORMATION
  Report Type: Spontaneous
  Country: US (occurrence: US)
  Receive Date: 20171102
  Receipt Date: 20171102
  Transmission Date: 20180321
  Serious: No
  Sender: FDA-Public Use
  Company Number: US-VERTEX PHARMACEUTICALS-2017-006071

PATIENT
  Sex: Female

DRUGS (3)
  1. PULMOZYME [Concomitant]
     Active Substance: DORNASE ALFA
     Dosage: 1 DOSAGE FORM, QD
     Route: 055
  2. CAYSTON [Concomitant]
     Active Substance: AZTREONAM
     Dosage: UNK, TID
  3. ORKAMBI [Suspect]
     Active Substance: IVACAFTOR\LUMACAFTOR
     Indication: CYSTIC FIBROSIS
     Dosage: UNK, BID
     Route: 048
     Dates: start: 201710

REACTIONS (1)
  - Limb discomfort [Unknown]

NARRATIVE: CASE EVENT DATE: 2017
